FAERS Safety Report 21855427 (Version 2)
Quarter: 2023Q4

REPORT INFORMATION
  Report Type: Report from Study
  Country: US (occurrence: US)
  Receive Date: 20230112
  Receipt Date: 20231219
  Transmission Date: 20240110
  Serious: Yes (Other)
  Sender: FDA-Public Use
  Company Number: US-002147023-NVSC2023US006546

PATIENT
  Sex: Male

DRUGS (2)
  1. COSENTYX [Suspect]
     Active Substance: SECUKINUMAB
     Indication: Product used for unknown indication
     Dosage: 300 MG, QW4
     Route: 065
  2. COSENTYX [Suspect]
     Active Substance: SECUKINUMAB
     Dosage: 300 MG, QW2
     Route: 065

REACTIONS (9)
  - Hyperkeratosis [Unknown]
  - Chronic obstructive pulmonary disease [Unknown]
  - Psoriasis [Unknown]
  - Pustular psoriasis [Unknown]
  - Rash pustular [Unknown]
  - Pain [Unknown]
  - Rash [Unknown]
  - Oedema peripheral [Unknown]
  - Papule [Unknown]
